FAERS Safety Report 20006304 (Version 2)
Quarter: 2022Q2

REPORT INFORMATION
  Report Type: Report from Study
  Country: IN (occurrence: IN)
  Receive Date: 20211028
  Receipt Date: 20220420
  Transmission Date: 20220720
  Serious: Yes (Hospitalization)
  Sender: FDA-Public Use
  Company Number: IN-NOVARTISPH-NVSC2021IN243100

PATIENT
  Age: 32 Year
  Sex: Male

DRUGS (19)
  1. SIMULECT [Suspect]
     Active Substance: BASILIXIMAB
     Indication: Renal transplant
     Dosage: 20 MG, UNKNOWN
     Route: 065
     Dates: start: 20210922, end: 20210926
  2. SOLU-MEDROL [Concomitant]
     Active Substance: METHYLPREDNISOLONE SODIUM SUCCINATE
     Indication: Product used for unknown indication
     Dosage: 1 G
     Route: 065
     Dates: start: 20210922
  3. SOLU-MEDROL [Concomitant]
     Active Substance: METHYLPREDNISOLONE SODIUM SUCCINATE
     Dosage: 500 MG
     Route: 042
     Dates: start: 20210923
  4. SOLU-MEDROL [Concomitant]
     Active Substance: METHYLPREDNISOLONE SODIUM SUCCINATE
     Dosage: 500 MG
     Route: 042
  5. MEROPENEM [Concomitant]
     Active Substance: MEROPENEM
     Indication: Product used for unknown indication
     Dosage: 500 MG, BID
     Route: 042
  6. POLYMYXIN B [Concomitant]
     Active Substance: POLYMYXIN B
     Indication: Product used for unknown indication
     Dosage: UNK UNK, BID (5 LLITER UNITS)
     Route: 042
  7. TACROLIMUS [Concomitant]
     Active Substance: TACROLIMUS
     Indication: Product used for unknown indication
     Dosage: UNK
     Route: 065
  8. TACROREN [Concomitant]
     Indication: Product used for unknown indication
     Dosage: 4 MG, BID
     Route: 048
  9. MYCOPHENOLATE MOFETIL [Concomitant]
     Active Substance: MYCOPHENOLATE MOFETIL
     Indication: Product used for unknown indication
     Dosage: UNK
     Route: 065
  10. MOFETYL [Concomitant]
     Indication: Product used for unknown indication
     Dosage: 360 MG, BID
     Route: 048
  11. PREDNISOLONE [Concomitant]
     Active Substance: PREDNISOLONE
     Indication: Product used for unknown indication
     Dosage: 27.5 MG, QD (FOLLOWED BY EVERY 3 DAYS)
     Route: 048
  12. VALGANCICLOVIR [Concomitant]
     Active Substance: VALGANCICLOVIR
     Indication: Product used for unknown indication
     Dosage: 450 MG
     Route: 048
  13. RANITIDINE HYDROCHLORIDE [Concomitant]
     Active Substance: RANITIDINE HYDROCHLORIDE
     Indication: Product used for unknown indication
     Dosage: 150 MG, BID
     Route: 048
  14. NIFEDIPINE [Concomitant]
     Active Substance: NIFEDIPINE
     Indication: Product used for unknown indication
     Dosage: 10 MG, BID
     Route: 048
  15. NODON [Concomitant]
     Indication: Product used for unknown indication
     Dosage: 5 MG, BID
     Route: 048
  16. CALCIUM [Concomitant]
     Active Substance: CALCIUM
     Indication: Product used for unknown indication
     Dosage: 500 MG, QD
     Route: 048
  17. BACTRIM [Concomitant]
     Active Substance: SULFAMETHOXAZOLE\TRIMETHOPRIM
     Indication: Product used for unknown indication
     Dosage: 0.5 DOSAGE FORM
     Route: 048
  18. CANDID [Concomitant]
     Indication: Product used for unknown indication
     Dosage: UNK, TID (MOUTH PAINT)
     Route: 048
  19. FOSIROL [Concomitant]
     Indication: Product used for unknown indication
     Dosage: 3 MG (ONCE IN 3 DYS X 5 DOSE 1 HOUR BEFORE BED))
     Route: 048

REACTIONS (4)
  - Kidney transplant rejection [Unknown]
  - Inflammation [Unknown]
  - Renal tubular injury [Unknown]
  - Tissue infiltration [Unknown]

NARRATIVE: CASE EVENT DATE: 20211010
